APPROVED DRUG PRODUCT: GUAIFENESIN
Active Ingredient: GUAIFENESIN
Strength: 600MG
Dosage Form/Route: TABLET, EXTENDED RELEASE;ORAL
Application: A209254 | Product #001
Applicant: OHM LABORATORIES INC
Approved: Jul 16, 2018 | RLD: No | RS: No | Type: OTC